FAERS Safety Report 25062859 (Version 1)
Quarter: 2025Q1

REPORT INFORMATION
  Report Type: Spontaneous
  Country: US (occurrence: US)
  Receive Date: 20250311
  Receipt Date: 20250311
  Transmission Date: 20250409
  Serious: No
  Sender: ALEXION PHARMACEUTICALS
  Company Number: US-AstraZeneca-CH-00823097AP

PATIENT

DRUGS (2)
  1. FULVESTRANT [Suspect]
     Active Substance: FULVESTRANT
     Route: 065
  2. FULVESTRANT [Suspect]
     Active Substance: FULVESTRANT

REACTIONS (12)
  - Pain [Unknown]
  - Stress [Unknown]
  - Asthenia [Unknown]
  - Injection site pain [Unknown]
  - Injection site erythema [Unknown]
  - Injection site reaction [Unknown]
  - Arthralgia [Unknown]
  - Hepatic enzyme increased [Unknown]
  - Incontinence [Unknown]
  - Urine odour abnormal [Unknown]
  - Incorrect product administration duration [Unknown]
  - Nervousness [Unknown]
